FAERS Safety Report 9279467 (Version 1)
Quarter: 2013Q2

REPORT INFORMATION
  Report Type: Spontaneous
  Country: US (occurrence: US)
  Receive Date: 20130508
  Receipt Date: 20130508
  Transmission Date: 20140414
  Serious: No
  Sender: FDA-Public Use
  Company Number: US-009507513-1305USA003555

PATIENT
  Age: 4 Year
  Sex: Female

DRUGS (1)
  1. CLARITIN ORAL SOLUTION [Suspect]
     Indication: PRURITUS
     Dosage: UNK, UNKNOWN
     Route: 048
     Dates: start: 201304

REACTIONS (3)
  - Drug ineffective [Unknown]
  - Expired drug administered [Unknown]
  - Off label use [Unknown]
